FAERS Safety Report 7248303-X (Version None)
Quarter: 2011Q1

REPORT INFORMATION
  Report Type: 
  Country: None (occurrence: None)
  Receive Date: 20110127
  Receipt Date: 20110124
  Transmission Date: 20110831
  Serious: Yes (Disabling, Other)
  Sender: FDA-Public Use
  Company Number: US-PFIZER INC-2011016779

PATIENT
  Sex: Male
  Weight: 79.365 kg

DRUGS (3)
  1. ENALAPRIL [Concomitant]
     Indication: HYPERTENSION
     Dosage: 10 MG, UNK
  2. XALATAN [Suspect]
     Indication: GLAUCOMA
     Dosage: UNK
     Route: 047
  3. BRIMONIDINE [Suspect]
     Dosage: UNK
     Route: 047

REACTIONS (3)
  - CORNEAL TRANSPLANT [None]
  - VISUAL ACUITY REDUCED [None]
  - OPTIC NERVE INJURY [None]
